FAERS Safety Report 16785777 (Version 1)
Quarter: 2019Q3

REPORT INFORMATION
  Report Type: Spontaneous
  Country: US (occurrence: US)
  Receive Date: 20190909
  Receipt Date: 20190909
  Transmission Date: 20191005
  Serious: Yes (Life-Threatening)
  Sender: FDA-Public Use
  Company Number: US-PFIZER INC-2019375053

PATIENT
  Age: 50 Year
  Sex: Male

DRUGS (9)
  1. VANCOMYCIN HCL [Suspect]
     Active Substance: VANCOMYCIN HYDROCHLORIDE
     Indication: MEDICAL DEVICE SITE JOINT INFECTION
     Dosage: UNK (VANCOMYCIN AND TOBRAMYCIN-CONTAINING CEMENT WAS MOLDED USING THE BALL HEAD OF THE FEMORAL COMP)
  2. VANCOMYCIN HCL [Suspect]
     Active Substance: VANCOMYCIN HYDROCHLORIDE
     Indication: BACTEROIDES INFECTION
  3. METRONIDAZOLE. [Concomitant]
     Active Substance: METRONIDAZOLE
     Indication: BIFIDOBACTERIUM INFECTION
  4. CEFTRIAXONE. [Concomitant]
     Active Substance: CEFTRIAXONE
     Indication: BIFIDOBACTERIUM INFECTION
  5. NORMAL SALINE [Concomitant]
     Active Substance: SODIUM CHLORIDE
     Indication: IRRIGATION THERAPY
     Dosage: UNK
  6. CEFTRIAXONE. [Concomitant]
     Active Substance: CEFTRIAXONE
     Indication: BACTEROIDES INFECTION
     Dosage: UNK
  7. METRONIDAZOLE. [Concomitant]
     Active Substance: METRONIDAZOLE
     Indication: BACTEROIDES INFECTION
     Dosage: UNK
  8. TOBRAMYCIN. [Suspect]
     Active Substance: TOBRAMYCIN
     Indication: ARTHRITIS INFECTIVE
     Dosage: UNK (VANCOMYCIN AND TOBRAMYCIN-CONTAINING CEMENT WAS MOLDED USING THE BALL HEAD OF THE FEMORAL COMP)
  9. VANCOMYCIN HCL [Suspect]
     Active Substance: VANCOMYCIN HYDROCHLORIDE
     Indication: BIFIDOBACTERIUM INFECTION

REACTIONS (1)
  - Fistula [Recovering/Resolving]
